FAERS Safety Report 16784001 (Version 9)
Quarter: 2021Q2

REPORT INFORMATION
  Report Type: Report from Study
  Country: GB (occurrence: GB)
  Receive Date: 20190909
  Receipt Date: 20210419
  Transmission Date: 20210716
  Serious: Yes (Hospitalization)
  Sender: FDA-Public Use
  Company Number: GB-ROCHE-2399729

PATIENT
  Age: 20 Year
  Sex: Male
  Weight: 108.9 kg

DRUGS (21)
  1. DOXORUBICIN [Suspect]
     Active Substance: DOXORUBICIN
     Indication: DIFFUSE LARGE B-CELL LYMPHOMA
     Dosage: FOR 6 CYCLES?ON 24/JUL/2019, MOST RECENT DOSE OF DOXORUBICIN 120 MG WAS ADMINISTERED PRIOR TO SAE ON
     Route: 042
     Dates: start: 20190411
  2. PREDNISONE. [Suspect]
     Active Substance: PREDNISONE
     Indication: DIFFUSE LARGE B-CELL LYMPHOMA
     Dosage: FOR 6 CYCLES?ON 28/JUL/2019, MOST RECENT DOSE OF PREDNISONE 100 MG ADMINISTERED PRIOR TO SAE ONSET A
     Route: 048
     Dates: start: 20190410
  3. HYDROCORTISONE. [Concomitant]
     Active Substance: HYDROCORTISONE
     Route: 042
     Dates: start: 20190814, end: 20190814
  4. CHLORPHENAMINE [Concomitant]
     Active Substance: CHLORPHENIRAMINE MALEATE
     Route: 048
     Dates: start: 20190724, end: 20190724
  5. FILGRASTIM [Concomitant]
     Active Substance: FILGRASTIM
     Route: 048
     Dates: start: 20190630, end: 20190801
  6. POLATUZUMAB VEDOTIN. [Suspect]
     Active Substance: POLATUZUMAB VEDOTIN
     Indication: DIFFUSE LARGE B-CELL LYMPHOMA
     Dosage: FOR 6 CYCLES?DATE OF MOST RECENT DOSE OF POLATUZUMAB VEDOTIN PRIOR TO SAE ONSET: 24/JUL/2019
     Route: 042
     Dates: start: 20190411
  7. PLACEBO [Suspect]
     Active Substance: UNSPECIFIED INGREDIENT
     Indication: DIFFUSE LARGE B-CELL LYMPHOMA
     Dosage: FOR 6 CYCLES?DATE OF MOST RECENT DOSE OF PLACEBO PRIOR TO SAE ONSET: 24/JUL/2019
     Route: 042
     Dates: start: 20190411
  8. PARACETAMOL [Concomitant]
     Active Substance: ACETAMINOPHEN
     Route: 048
     Dates: start: 20190812, end: 20190812
  9. CHLORPHENAMINE [Concomitant]
     Active Substance: CHLORPHENIRAMINE MALEATE
     Route: 048
     Dates: start: 20190904, end: 20190904
  10. FILGRASTIM [Concomitant]
     Active Substance: FILGRASTIM
     Route: 048
     Dates: start: 20190609, end: 20190711
  11. CYCLIZINE [Concomitant]
     Active Substance: CYCLIZINE
     Indication: VOMITING
     Route: 042
     Dates: start: 20190724, end: 20190730
  12. HYDROCORTISONE. [Concomitant]
     Active Substance: HYDROCORTISONE
     Route: 042
     Dates: start: 20190904, end: 20190904
  13. CYCLOPHOSPHAMIDE. [Suspect]
     Active Substance: CYCLOPHOSPHAMIDE
     Indication: DIFFUSE LARGE B-CELL LYMPHOMA
     Dosage: FOR 6 CYCLES?ON 25/JUL/2019, MOST RECENT DOSE OF CYCLOPHOSPHAMIDE 1800 MG ADMINISTERED PRIOR TO SAE
     Route: 042
     Dates: start: 20190411
  14. PARACETAMOL [Concomitant]
     Active Substance: ACETAMINOPHEN
     Route: 042
     Dates: start: 20190724, end: 20190724
  15. ONDANSETRON [Concomitant]
     Active Substance: ONDANSETRON
     Route: 048
     Dates: start: 20190703, end: 20190704
  16. RITUXIMAB. [Suspect]
     Active Substance: RITUXIMAB
     Indication: DIFFUSE LARGE B-CELL LYMPHOMA
     Dosage: FOR 8 CYCLES (800 MG)?DATE OF MOST RECENT DOSE OF RITUXIMAB OF 800 MG PRIOR TO SAE ONSET: 14/AUG/201
     Route: 042
     Dates: start: 20190410
  17. PARACETAMOL [Concomitant]
     Active Substance: ACETAMINOPHEN
     Route: 048
     Dates: start: 20190814, end: 20190814
  18. PARACETAMOL [Concomitant]
     Active Substance: ACETAMINOPHEN
     Route: 048
     Dates: start: 20190904, end: 20190904
  19. CHLORPHENAMINE [Concomitant]
     Active Substance: CHLORPHENIRAMINE MALEATE
     Route: 048
     Dates: start: 20190814, end: 20190814
  20. ONDANSETRON [Concomitant]
     Active Substance: ONDANSETRON
     Route: 048
     Dates: start: 20190724, end: 20190725
  21. MEROPENEM. [Concomitant]
     Active Substance: MEROPENEM
     Route: 042

REACTIONS (2)
  - Malaise [Recovered/Resolved]
  - Infection [Recovered/Resolved]

NARRATIVE: CASE EVENT DATE: 20190803
